FAERS Safety Report 14531930 (Version 1)
Quarter: 2018Q1

REPORT INFORMATION
  Report Type: Spontaneous
  Country: FI (occurrence: FI)
  Receive Date: 20180214
  Receipt Date: 20180214
  Transmission Date: 20180509
  Serious: Yes (Hospitalization)
  Sender: FDA-Public Use
  Company Number: FI-TEVA-2018-FI-855497

PATIENT
  Age: 56 Year
  Sex: Female
  Weight: 176 kg

DRUGS (8)
  1. METHYLPREDNISOLONE. [Suspect]
     Active Substance: METHYLPREDNISOLONE
     Route: 042
     Dates: start: 20171208
  2. TREOSULFAN [Suspect]
     Active Substance: TREOSULFAN
     Route: 042
     Dates: start: 20171208, end: 20171209
  3. CALCITRAN D3 FORTE [Suspect]
     Active Substance: CALCIUM CARBONATE\CHOLECALCIFEROL
     Dosage: 1X2
     Route: 048
     Dates: start: 20171206
  4. ONDANSETRON [Suspect]
     Active Substance: ONDANSETRON
     Indication: NAUSEA
     Route: 048
     Dates: start: 20171206, end: 20171212
  5. ALLOPURINOL. [Suspect]
     Active Substance: ALLOPURINOL
     Route: 048
     Dates: start: 20171205, end: 20171210
  6. URSODEOXYCHOLIC ACID [Suspect]
     Active Substance: URSODIOL
     Route: 048
     Dates: start: 20171205
  7. GRAFALON [Suspect]
     Active Substance: LAPINE T-LYMPHOCYTE IMMUNE GLOBULIN
     Indication: STEM CELL TRANSPLANT
     Route: 042
     Dates: start: 20171208, end: 20171208
  8. FLUDARABINE [Suspect]
     Active Substance: FLUDARABINE PHOSPHATE
     Route: 042
     Dates: start: 20171208, end: 20171209

REACTIONS (1)
  - Disseminated intravascular coagulation [Unknown]

NARRATIVE: CASE EVENT DATE: 20171208
